FAERS Safety Report 7416080-5 (Version None)
Quarter: 2011Q2

REPORT INFORMATION
  Report Type: 
  Country: None (occurrence: None)
  Receive Date: 20110414
  Receipt Date: 20110401
  Transmission Date: 20111010
  Serious: Yes (Death)
  Sender: FDA-Public Use
  Company Number: US-ROCHE-766503

PATIENT
  Sex: Female

DRUGS (3)
  1. BEVACIZUMAB [Suspect]
     Indication: MEDULLOBLASTOMA
     Route: 065
  2. VISMODEGIB [Suspect]
     Indication: MEDULLOBLASTOMA
     Dosage: 150 MG, QD
     Route: 048
     Dates: start: 20100209, end: 20100330
  3. VISMODEGIB [Suspect]
     Dosage: 150 MG, QD
     Route: 048
     Dates: start: 20100209, end: 20100330

REACTIONS (2)
  - DISEASE PROGRESSION [None]
  - DEATH [None]
